FAERS Safety Report 5892526-9 (Version None)
Quarter: 2008Q3

REPORT INFORMATION
  Report Type: 
  Country: None (occurrence: None)
  Receive Date: 20080923
  Receipt Date: 20080916
  Transmission Date: 20090109
  Serious: Yes (Other)
  Sender: FDA-Public Use
  Company Number: US-CELGENEUS-163-21880-08081113

PATIENT
  Sex: Female

DRUGS (2)
  1. REVLIMID [Suspect]
     Indication: MULTIPLE MYELOMA
     Route: 048
     Dates: start: 20080101
  2. REVLIMID [Suspect]
     Route: 048
     Dates: start: 20080422, end: 20080101

REACTIONS (3)
  - DIPLOPIA [None]
  - EYE MOVEMENT DISORDER [None]
  - PLASMACYTOMA [None]
